FAERS Safety Report 6016546-9 (Version None)
Quarter: 2008Q4

REPORT INFORMATION
  Report Type: 
  Country: None (occurrence: None)
  Receive Date: 20081218
  Receipt Date: 20081204
  Transmission Date: 20090506
  Serious: Yes (Other)
  Sender: FDA-Public Use
  Company Number: 2008SP003136

PATIENT
  Age: 75 Year
  Sex: Male

DRUGS (1)
  1. ALVESCO [Suspect]
     Indication: ASTHMA
     Dosage: INHALATION
     Route: 055

REACTIONS (1)
  - ANAPHYLACTIC REACTION [None]
